FAERS Safety Report 6910860-8 (Version None)
Quarter: 2010Q3

REPORT INFORMATION
  Report Type: 
  Country: None (occurrence: None)
  Receive Date: 20100806
  Receipt Date: 20100726
  Transmission Date: 20110219
  Serious: Yes (Other)
  Sender: FDA-Public Use
  Company Number: CA-JNJFOC-20100708392

PATIENT
  Sex: Male
  Weight: 107 kg

DRUGS (14)
  1. REMICADE [Suspect]
     Indication: BEHCET'S SYNDROME
  2. REMICADE [Suspect]
     Indication: COLITIS ULCERATIVE
  3. HYDROMORPHONE CONTIN [Concomitant]
  4. CYMBALTA [Concomitant]
  5. AMITRIPTYLINE HYDROCHLORIDE [Concomitant]
     Dosage: UP TO 75 MG AT NIGHT
  6. TOPAMAX [Concomitant]
  7. SANDOMIGRAN [Concomitant]
  8. LYRICA [Concomitant]
  9. NAPROXEN [Concomitant]
  10. RABEPRAZOLE SODIUM [Concomitant]
  11. LOVAZA [Concomitant]
     Dosage: ^2 TIMES^
  12. VITAMIN B [Concomitant]
     Dosage: ^10,000^
  13. E VITAMIN [Concomitant]
  14. MELATONIN [Concomitant]

REACTIONS (2)
  - INCISIONAL DRAINAGE [None]
  - NAIL OPERATION [None]
